FAERS Safety Report 11839334 (Version 5)
Quarter: 2016Q1

REPORT INFORMATION
  Report Type: Spontaneous
  Country: IT (occurrence: IT)
  Receive Date: 20151216
  Receipt Date: 20160123
  Transmission Date: 20160525
  Serious: Yes (Disabling, Other)
  Sender: FDA-Public Use
  Company Number: IT-ACCORD-036143

PATIENT
  Age: 69 Year
  Sex: Male
  Weight: 57 kg

DRUGS (6)
  1. PANTORC [Concomitant]
     Active Substance: PANTOPRAZOLE SODIUM
     Route: 048
  2. IRINOTECAN [Suspect]
     Active Substance: IRINOTECAN
     Indication: NEOPLASM RECURRENCE
     Route: 042
     Dates: start: 20150512
  3. BEVACIZUMAB [Suspect]
     Active Substance: BEVACIZUMAB
     Indication: NEOPLASM RECURRENCE
     Route: 042
     Dates: start: 20140507
  4. LEDERFOLIN [Suspect]
     Active Substance: LEUCOVORIN CALCIUM
     Indication: NEOPLASM RECURRENCE
     Dates: start: 20140507, end: 20150512
  5. FLUOROURACIL. [Suspect]
     Active Substance: FLUOROURACIL
     Indication: NEOPLASM RECURRENCE
     Dosage: 3150 MG FROM 12-MAY-2015 TO 18-NOV-2015, 510 MG IV BOLUS AND 3050 MG FROM 07-MAY-2014 TO 22-APR-2015
     Route: 042
     Dates: start: 20140507
  6. CREON [Concomitant]
     Active Substance: PANCRELIPASE AMYLASE\PANCRELIPASE LIPASE\PANCRELIPASE PROTEASE

REACTIONS (5)
  - Influenza [Recovering/Resolving]
  - Neutropenia [Recovering/Resolving]
  - Vertigo [Unknown]
  - Hypoacusis [Not Recovered/Not Resolved]
  - Diarrhoea [Recovering/Resolving]

NARRATIVE: CASE EVENT DATE: 20150330
